FAERS Safety Report 10576061 (Version 2)
Quarter: 2014Q4

REPORT INFORMATION
  Report Type: Report from Study
  Country: US (occurrence: US)
  Receive Date: 20141111
  Receipt Date: 20141216
  Transmission Date: 20150529
  Serious: No
  Sender: FDA-Public Use
  Company Number: US-ELI_LILLY_AND_COMPANY-US201410006413

PATIENT
  Sex: Female

DRUGS (1)
  1. TADALAFIL [Suspect]
     Active Substance: TADALAFIL
     Indication: PULMONARY ARTERIAL HYPERTENSION

REACTIONS (2)
  - Dyspepsia [Unknown]
  - Cough [Unknown]
